FAERS Safety Report 5630778-0 (Version None)
Quarter: 2008Q1

REPORT INFORMATION
  Report Type: 
  Country: None (occurrence: None)
  Receive Date: 20080212
  Receipt Date: 20080204
  Transmission Date: 20080703
  Serious: Yes (Death)
  Sender: FDA-Public Use
  Company Number: 2008-00930

PATIENT
  Age: 35 Year
  Sex: Male

DRUGS (5)
  1. LISINOPRIL [Suspect]
  2. CITALOPRAM HYDROBROMIDE [Suspect]
  3. BUPROPION HYDROCHLORIDE [Suspect]
  4. ARIPIPRAZOLE [Suspect]
  5. VALPROIC ACID [Suspect]

REACTIONS (1)
  - DEATH [None]
